FAERS Safety Report 5875191-6 (Version None)
Quarter: 2008Q3

REPORT INFORMATION
  Report Type: 
  Country: None (occurrence: None)
  Receive Date: 20080909
  Receipt Date: 20080829
  Transmission Date: 20090109
  Serious: Yes (Hospitalization)
  Sender: FDA-Public Use
  Company Number: FR-JNJFOC-20080805454

PATIENT
  Age: 36 Year
  Sex: Female
  Weight: 60 kg

DRUGS (7)
  1. REMICADE [Suspect]
     Dosage: 3RD INFUSION
     Route: 042
  2. REMICADE [Suspect]
     Route: 042
  3. REMICADE [Suspect]
     Indication: ANKYLOSING SPONDYLITIS
     Dosage: 1ST TWO INFUSIONS ON UNKNOWN DATES
     Route: 042
  4. CYCLOSPORINE [Concomitant]
  5. ACTONEL [Concomitant]
  6. NEORAL [Concomitant]
  7. ACETAMINOPHEN [Concomitant]

REACTIONS (1)
  - MIGRAINE [None]
